FAERS Safety Report 6771503-X (Version None)
Quarter: 2010Q2

REPORT INFORMATION
  Report Type: 
  Country: None (occurrence: None)
  Receive Date: 20100616
  Receipt Date: 20100609
  Transmission Date: 20101027
  Serious: No
  Sender: FDA-Public Use
  Company Number: US-BAYER-201016656BCC

PATIENT
  Age: 91 Year
  Sex: Female
  Weight: 56 kg

DRUGS (4)
  1. ALEVE ARTHRITIS SOFT CAP [Suspect]
     Indication: BONE PAIN
     Dosage: TOTAL DAILY DOSE: 440 MG  UNIT DOSE: 220 MG
     Route: 048
     Dates: start: 20080101
  2. ASPIRIN [Concomitant]
     Route: 065
  3. NATURE MADE 50 PLUS [Concomitant]
     Route: 065
  4. VITAMIN E [Concomitant]
     Route: 065

REACTIONS (1)
  - RENAL FUNCTION TEST ABNORMAL [None]
